FAERS Safety Report 9462702 (Version 1)
Quarter: 2013Q3

REPORT INFORMATION
  Report Type: Report from Study
  Country: BR (occurrence: BR)
  Receive Date: 20130816
  Receipt Date: 20130816
  Transmission Date: 20140515
  Serious: Yes (Hospitalization, Other)
  Sender: FDA-Public Use
  Company Number: PHHY2013BR076009

PATIENT
  Age: 88 Year
  Sex: Male
  Weight: 86 kg

DRUGS (14)
  1. EXELON PATCH [Suspect]
     Indication: DEMENTIA ALZHEIMER^S TYPE
     Dosage: 4.6 MG, DAILY (PATCH 5 CM2)
     Route: 062
     Dates: start: 201304
  2. EXELON PATCH [Suspect]
     Dosage: 9.5 MG, PER DAY (PATCH 10 CM2)
     Route: 062
     Dates: start: 201307
  3. DIOVAN [Suspect]
     Indication: HYPERTENSION
     Dosage: 1 DF, DAILY
     Route: 048
     Dates: start: 201304
  4. ATENOLOL [Concomitant]
     Indication: HYPERTENSION
     Dosage: 1 DF, A DAY
     Route: 048
  5. METFORMIN [Concomitant]
     Indication: DIABETES MELLITUS
     Dosage: 2 DF, A DAY
     Route: 048
  6. CLOPIDOGREL BISULFATE [Concomitant]
     Indication: ANTICOAGULANT THERAPY
     Dosage: 1 DF, A DAY
     Route: 048
  7. LIPITOR [Concomitant]
     Indication: BLOOD CHOLESTEROL INCREASED
     Dosage: 1 DF, A DAY
     Route: 048
  8. B12-VITAMIIN [Concomitant]
     Indication: MEMORY IMPAIRMENT
     Dosage: 1 DF, A DAY
     Route: 060
  9. B12-VITAMIIN [Concomitant]
     Indication: VITAMIN B12 DEFICIENCY
  10. B1 VITAMIN [Concomitant]
     Indication: MEMORY IMPAIRMENT
     Dosage: 1 DF, A DAY
     Route: 048
  11. B1 VITAMIN [Concomitant]
     Indication: VITAMIN B1 DEFICIENCY
  12. FOLIC ACID [Concomitant]
     Indication: MEMORY IMPAIRMENT
     Dosage: 1 DF, A DAY
     Route: 048
  13. FOLIC ACID [Concomitant]
     Indication: FOLATE DEFICIENCY
  14. XARELTO [Concomitant]
     Indication: THROMBOSIS
     Dosage: UNK UKN, UNK
     Route: 048
     Dates: end: 20130812

REACTIONS (5)
  - Femur fracture [Recovering/Resolving]
  - Confusional state [Recovering/Resolving]
  - Starvation [Recovering/Resolving]
  - Fall [Recovering/Resolving]
  - Hepatic encephalopathy [Recovering/Resolving]
